FAERS Safety Report 23021352 (Version 2)
Quarter: 2023Q4

REPORT INFORMATION
  Report Type: Spontaneous
  Country: FR (occurrence: FR)
  Receive Date: 20231003
  Receipt Date: 20231109
  Transmission Date: 20240110
  Serious: Yes (Hospitalization, Other)
  Sender: FDA-Public Use
  Company Number: FR-ROCHE-3401461

PATIENT
  Age: 75 Year
  Sex: Female
  Weight: 62 kg

DRUGS (9)
  1. RITUXIMAB [Suspect]
     Active Substance: RITUXIMAB
     Indication: Chronic lymphocytic leukaemia
     Dosage: 500 MG/M2, MONTHLY (ON 08MAR2023 MOST RECENT DOSE OR RITUXIMAB PRIOR TO SAE)
     Route: 042
     Dates: start: 20221020, end: 20230308
  2. RITUXIMAB [Suspect]
     Active Substance: RITUXIMAB
     Dosage: 400 MG, 1X/DAY
     Route: 042
     Dates: start: 20230706
  3. VENETOCLAX [Suspect]
     Active Substance: VENETOCLAX
     Indication: Chronic lymphocytic leukaemia
     Dosage: 400 MG, 1X/DAY
     Route: 048
     Dates: start: 20220908, end: 20230725
  4. FEBUXOSTAT [Concomitant]
     Active Substance: FEBUXOSTAT
     Dosage: UNK
  5. PENTACARINAT [Concomitant]
     Active Substance: PENTAMIDINE ISETHIONATE
     Dosage: UNK
  6. ACYCLOVIR [Concomitant]
     Active Substance: ACYCLOVIR
     Dosage: UNK
  7. CANDESARTAN CILEXETIL\HYDROCHLOROTHIAZIDE [Concomitant]
     Active Substance: CANDESARTAN CILEXETIL\HYDROCHLOROTHIAZIDE
     Dosage: UNK
     Dates: start: 201601
  8. ZOPICLONE [Concomitant]
     Active Substance: ZOPICLONE
     Dosage: UNK
     Dates: start: 20230628
  9. OMEPRAZOLE [Concomitant]
     Active Substance: OMEPRAZOLE
     Dosage: UNK
     Dates: start: 20230628

REACTIONS (4)
  - Post-acute COVID-19 syndrome [Recovered/Resolved]
  - COVID-19 [Recovered/Resolved]
  - Reticulocyte count increased [Unknown]
  - Off label use [Unknown]

NARRATIVE: CASE EVENT DATE: 20230628
